FAERS Safety Report 4658084-1 (Version None)
Quarter: 2005Q2

REPORT INFORMATION
  Report Type: 
  Country: None (occurrence: None)
  Receive Date: 20050509
  Receipt Date: 20050301
  Transmission Date: 20051028
  Serious: Yes (Life-Threatening)
  Sender: FDA-Public Use
  Company Number: BRO-008286

PATIENT
  Age: 24 Year
  Sex: Female

DRUGS (8)
  1. MULTIHANCE [Suspect]
     Indication: ANGIOGRAM
     Dosage: 20 ML, IV
     Route: 042
     Dates: start: 20041229, end: 20041229
  2. METHADONE HCL [Concomitant]
  3. INOHEP [Concomitant]
  4. FLUCLOXACILLIN [Concomitant]
  5. BENZYLPENICILLIN [Concomitant]
  6. TYLEX [Concomitant]
  7. DIFENE, (DICLOFENAC SODIUM) [Concomitant]
  8. PETHIDINE [Concomitant]

REACTIONS (10)
  - CARDIAC ARREST [None]
  - DEEP VEIN THROMBOSIS [None]
  - FACE OEDEMA [None]
  - FEMORAL ARTERY ANEURYSM [None]
  - LARYNGEAL OEDEMA [None]
  - LOSS OF CONSCIOUSNESS [None]
  - PULMONARY EMBOLISM [None]
  - RESPIRATORY ARREST [None]
  - SCREAMING [None]
  - SWELLING FACE [None]
